FAERS Safety Report 8106117-2 (Version None)
Quarter: 2012Q1

REPORT INFORMATION
  Report Type: 
  Country: None (occurrence: None)
  Receive Date: 20120202
  Receipt Date: 20120127
  Transmission Date: 20120608
  Serious: No
  Sender: FDA-Public Use
  Company Number: US-PFIZER INC-2011299241

PATIENT
  Sex: Female
  Weight: 77.098 kg

DRUGS (10)
  1. FLEXERIL [Concomitant]
     Indication: CYSTITIS INTERSTITIAL
     Dosage: UNK
  2. AMBIEN [Concomitant]
     Indication: CYSTITIS INTERSTITIAL
     Dosage: UNK
  3. WELLBUTRIN [Concomitant]
     Indication: CYSTITIS INTERSTITIAL
     Dosage: UNK
  4. METHENAMINE/SODIUM BIPHOSP/PHENYL SALIC/METHYLENE BLUE/HYOSCYAM SULF [Concomitant]
  5. VALIUM [Concomitant]
  6. TOPAMAX [Concomitant]
     Indication: CYSTITIS INTERSTITIAL
     Dosage: UNK
  7. ESTRING [Suspect]
     Indication: PREMATURE MENOPAUSE
  8. ELMIRON [Concomitant]
     Indication: CYSTITIS INTERSTITIAL
     Dosage: UNK
  9. ATARAX [Concomitant]
     Indication: CYSTITIS INTERSTITIAL
     Dosage: UNK
  10. ESTRING [Suspect]
     Indication: VULVOVAGINAL DRYNESS
     Dosage: 2 MG, UNK
     Route: 067
     Dates: start: 20111202, end: 20111202

REACTIONS (3)
  - DRUG INEFFECTIVE [None]
  - VULVOVAGINAL PAIN [None]
  - VULVOVAGINAL DISCOMFORT [None]
